FAERS Safety Report 11713532 (Version 1)
Quarter: 2015Q4

REPORT INFORMATION
  Report Type: Spontaneous
  Country: US (occurrence: None)
  Receive Date: 20151106
  Receipt Date: 20151106
  Transmission Date: 20160304
  Serious: Yes (Other)
  Sender: FDA-Public Use
  Company Number: None

PATIENT
  Age: 52 Year
  Sex: Male
  Weight: 70.31 kg

DRUGS (5)
  1. PROAIR HFA [Concomitant]
     Active Substance: ALBUTEROL SULFATE
  2. SYNTHROID [Suspect]
     Active Substance: LEVOTHYROXINE SODIUM
     Indication: HYPOTHYROIDISM
     Dosage: 1  1/2 PILLS?ONCE DAILY?TAKEN BY MOUTH
     Route: 048
     Dates: start: 20140826, end: 20141105
  3. CLARITIN [Concomitant]
     Active Substance: LORATADINE
  4. LEVOXY [Concomitant]
  5. ASTELIN [Concomitant]
     Active Substance: AZELASTINE HYDROCHLORIDE

REACTIONS (5)
  - Irritability [None]
  - Depression [None]
  - Anger [None]
  - Malaise [None]
  - Product substitution issue [None]

NARRATIVE: CASE EVENT DATE: 20140826
